FAERS Safety Report 8298726-5 (Version None)
Quarter: 2012Q2

REPORT INFORMATION
  Report Type: 
  Country: None (occurrence: None)
  Receive Date: 20120419
  Receipt Date: 20120410
  Transmission Date: 20120825
  Serious: Yes (Other)
  Sender: FDA-Public Use
  Company Number: US-ASTRAZENECA-2010SE28383

PATIENT
  Age: 64 Year
  Sex: Female
  Weight: 104.8 kg

DRUGS (12)
  1. DEMODEX [Concomitant]
  2. MULTI-VITAMINS [Concomitant]
     Dosage: DAILY
  3. PAIN MEDICATION [Concomitant]
     Indication: PAIN
     Dosage: PRN
  4. NIOSPAN [Concomitant]
     Indication: PERIPHERAL VASCULAR DISORDER
  5. CINNAMIN [Concomitant]
     Indication: DIABETES MELLITUS
  6. SEROQUEL [Suspect]
     Indication: BIPOLAR DISORDER
     Route: 048
  7. SERTRALINE HYDROCHLORIDE [Concomitant]
  8. CALCIUM CARBONATE [Concomitant]
     Dosage: DAILY
  9. METFORMIN HCL [Concomitant]
     Indication: TYPE 2 DIABETES MELLITUS
  10. FISH OIL [Concomitant]
  11. SYNTHROID [Concomitant]
  12. POTASSIUM CHLORIDE [Concomitant]
     Dosage: 20 MEQ, DAILY

REACTIONS (12)
  - BLOOD DISORDER [None]
  - TYPE 2 DIABETES MELLITUS [None]
  - OVERWEIGHT [None]
  - MEAN CELL VOLUME ABNORMAL [None]
  - PLATELET AGGREGATION DECREASED [None]
  - BLOOD GLUCOSE INCREASED [None]
  - HUNGER [None]
  - LYMPHOCYTE COUNT INCREASED [None]
  - LIVER FUNCTION TEST ABNORMAL [None]
  - ALANINE AMINOTRANSFERASE INCREASED [None]
  - CARDIAC FAILURE CONGESTIVE [None]
  - MEAN CELL HAEMOGLOBIN CONCENTRATION INCREASED [None]
